FAERS Safety Report 20929203 (Version 1)
Quarter: 2022Q2

REPORT INFORMATION
  Report Type: Report from Study
  Country: FR (occurrence: FR)
  Receive Date: 20220608
  Receipt Date: 20220608
  Transmission Date: 20220720
  Serious: Yes (Hospitalization)
  Sender: FDA-Public Use
  Company Number: FR-SERVIER-S22005716

PATIENT

DRUGS (21)
  1. PEGASPARGASE [Suspect]
     Active Substance: PEGASPARGASE
     Indication: Acute lymphocytic leukaemia
     Dosage: 1615 IU, D15, D43
     Route: 042
     Dates: start: 20210531, end: 20210705
  2. CYCLOPHOSPHAMIDE [Suspect]
     Active Substance: CYCLOPHOSPHAMIDE
     Indication: Acute lymphocytic leukaemia
     Dosage: 1210 MG, D1 TO D29
     Route: 042
     Dates: start: 20210514, end: 20210621
  3. MERCAPTOPURINE [Suspect]
     Active Substance: MERCAPTOPURINE
     Indication: Acute lymphocytic leukaemia
     Dosage: 75 MG, D1 TO D14, D29 TO D42
     Route: 048
     Dates: start: 20210515, end: 20210704
  4. CYTARABINE [Suspect]
     Active Substance: CYTARABINE
     Indication: Acute lymphocytic leukaemia
     Dosage: 91 MG, D3 TO D6, D10 TO D13, D31 TO UNKNOWN
     Route: 042
     Dates: start: 20210516, end: 20210703
  5. CYTARABINE [Suspect]
     Active Substance: CYTARABINE
     Dosage: 30 MG, D3, D13
     Route: 037
     Dates: start: 20210516, end: 20210523
  6. CYTARABINE [Suspect]
     Active Substance: CYTARABINE
     Dosage: 30 MG, BLINATUMOMAB PHASE
     Route: 037
     Dates: start: 20210825, end: 20211025
  7. METHOTREXATE [Suspect]
     Active Substance: METHOTREXATE
     Indication: Acute lymphocytic leukaemia
     Dosage: 15 MG, D3, D13
     Route: 037
     Dates: start: 20210516, end: 20210523
  8. METHOTREXATE [Suspect]
     Active Substance: METHOTREXATE
     Dosage: 15 MG, BLINATUMOMAB PHASE
     Route: 037
     Dates: start: 20210825, end: 20211025
  9. HYDROCORTISONE [Suspect]
     Active Substance: HYDROCORTISONE
     Indication: Acute lymphocytic leukaemia
     Dosage: 15 MG, D3, D13
     Route: 037
     Dates: start: 20210516, end: 20210523
  10. HYDROCORTISONE [Suspect]
     Active Substance: HYDROCORTISONE
     Dosage: 15 MG, BLINATUMOMAB PHASE
     Route: 037
     Dates: start: 20210825, end: 20211025
  11. VINCRISTINE [Suspect]
     Active Substance: VINCRISTINE
     Indication: Acute lymphocytic leukaemia
     Dosage: 1.8 MG, D14, D22, D43, D50
     Route: 042
     Dates: start: 20210531, end: 20210712
  12. BLINATUMOMAB [Suspect]
     Active Substance: BLINATUMOMAB
     Indication: Acute lymphocytic leukaemia
     Dosage: 74 ?G
     Route: 042
     Dates: start: 20210820, end: 20211104
  13. CANCIDAS [Suspect]
     Active Substance: CASPOFUNGIN ACETATE
     Indication: Product used for unknown indication
     Dosage: 60 MG
     Route: 042
  14. LEUCOVORIN CALCIUM [Suspect]
     Active Substance: LEUCOVORIN CALCIUM
     Indication: Product used for unknown indication
     Dosage: 5 MG, UNK
     Route: 048
  15. POTASSIUM CHLORIDE [Suspect]
     Active Substance: POTASSIUM CHLORIDE
     Indication: Product used for unknown indication
     Dosage: 1200 MG, UNK
     Route: 048
  16. VITAMIN C [Suspect]
     Active Substance: ASCORBIC ACID
     Indication: Product used for unknown indication
     Dosage: 500 MG, UNK
     Route: 048
  17. ZINC GLUCONATE [Suspect]
     Active Substance: ZINC GLUCONATE
     Indication: Product used for unknown indication
     Dosage: 15 MG, UNK
     Route: 048
  18. CHOLECALCIFEROL [Suspect]
     Active Substance: CHOLECALCIFEROL
     Indication: Product used for unknown indication
     Dosage: 100000 IU, UNK
     Route: 048
  19. ONDANSETRON [Suspect]
     Active Substance: ONDANSETRON
     Indication: Product used for unknown indication
     Dosage: 8 MG, BID
     Route: 048
  20. METOPIMAZINE [Suspect]
     Active Substance: METOPIMAZINE
     Indication: Product used for unknown indication
     Dosage: 7.5 MG, TID
     Route: 048
  21. HYDROXYZINE [Suspect]
     Active Substance: HYDROXYZINE HYDROCHLORIDE
     Indication: Product used for unknown indication
     Dosage: 12 MG, BID
     Route: 048

REACTIONS (1)
  - Pseudomonal sepsis [Recovered/Resolved]

NARRATIVE: CASE EVENT DATE: 20211121
